FAERS Safety Report 21623034 (Version 2)
Quarter: 2022Q4

REPORT INFORMATION
  Report Type: Report from Study
  Country: US (occurrence: US)
  Receive Date: 20221121
  Receipt Date: 20221220
  Transmission Date: 20230113
  Serious: Yes (Life-Threatening, Hospitalization, Other)
  Sender: FDA-Public Use
  Company Number: US-ARGENX-2022-ARGX-US002303

PATIENT

DRUGS (1)
  1. VYVGART [Suspect]
     Active Substance: EFGARTIGIMOD ALFA-FCAB
     Indication: Myasthenia gravis
     Route: 042

REACTIONS (6)
  - Endotracheal intubation [Unknown]
  - Gastrointestinal tube insertion [Recovering/Resolving]
  - Bulbar palsy [Unknown]
  - Eye irritation [Unknown]
  - Headache [Unknown]
  - Dysarthria [Unknown]

NARRATIVE: CASE EVENT DATE: 20221107
